FAERS Safety Report 14345321 (Version 10)
Quarter: 2020Q2

REPORT INFORMATION
  Report Type: Spontaneous
  Country: DE (occurrence: DE)
  Receive Date: 20180103
  Receipt Date: 20200428
  Transmission Date: 20200713
  Serious: Yes (Life-Threatening, Hospitalization, Other)
  Sender: FDA-Public Use
  Company Number: DE-AUROBINDO-AUR-APL-2017-47104

PATIENT
  Age: 48 Year
  Sex: Male

DRUGS (4)
  1. IBUPROFEN 800MG [Suspect]
     Active Substance: IBUPROFEN
     Dosage: 2400 MG, ONCE A DAY (800 MG, TID)
     Route: 048
  2. IBUPROFEN 800MG [Suspect]
     Active Substance: IBUPROFEN
     Indication: PAIN
     Dosage: 800 MILLIGRAM, 3 TIMES A DAY
     Route: 048
  3. IBUPROFEN 800MG [Suspect]
     Active Substance: IBUPROFEN
     Indication: ASTHMA
     Dosage: 270 DOSAGE FORM, DAILY,90 DF, 3X/DAY (90 TABLETS, HIGH DOSE)
     Route: 048
  4. IBUPROFEN 800MG [Suspect]
     Active Substance: IBUPROFEN
     Dosage: 72 GRAM
     Route: 065

REACTIONS (13)
  - Metabolic acidosis [Unknown]
  - Hypotension [Recovering/Resolving]
  - Toxicity to various agents [Unknown]
  - Circulatory collapse [Unknown]
  - Dehydration [Recovering/Resolving]
  - Tachycardia [Recovered/Resolved]
  - Suicide attempt [Recovering/Resolving]
  - Cardiovascular insufficiency [Unknown]
  - Acute kidney injury [Unknown]
  - Intentional overdose [Unknown]
  - Somnolence [Unknown]
  - Coma scale abnormal [Unknown]
  - Product prescribing issue [Unknown]
